FAERS Safety Report 22264007 (Version 1)
Quarter: 2023Q2

REPORT INFORMATION
  Report Type: Spontaneous
  Country: CA (occurrence: CA)
  Receive Date: 20230428
  Receipt Date: 20230428
  Transmission Date: 20230721
  Serious: Yes (Death, Other)
  Sender: FDA-Public Use
  Company Number: CA-JNJFOC-20230462986

PATIENT
  Age: 51 Year
  Sex: Female
  Weight: 100 kg

DRUGS (5)
  1. REMICADE [Suspect]
     Active Substance: INFLIXIMAB
     Indication: Crohn^s disease
     Route: 041
  2. INFLIXIMAB [Suspect]
     Active Substance: INFLIXIMAB
     Indication: Crohn^s disease
     Route: 042
  3. MESALAMINE [Concomitant]
     Active Substance: MESALAMINE
  4. MORPHINE [Concomitant]
     Active Substance: MORPHINE
  5. PREDNISONE [Concomitant]
     Active Substance: PREDNISONE

REACTIONS (7)
  - Death [Fatal]
  - Aphthous ulcer [Unknown]
  - Somnolence [Unknown]
  - Abscess [Unknown]
  - Arthralgia [Unknown]
  - Condition aggravated [Unknown]
  - Off label use [Unknown]
